FAERS Safety Report 4475609-X (Version None)
Quarter: 2004Q3

REPORT INFORMATION
  Report Type: 
  Country: None (occurrence: None)
  Receive Date: 20040923
  Receipt Date: 20040713
  Transmission Date: 20050211
  Serious: No
  Sender: FDA-Public Use
  Company Number: USA040772488

PATIENT
  Age: 69 Year
  Sex: Female

DRUGS (1)
  1. FORTEO [Suspect]
     Dosage: 20 UG

REACTIONS (2)
  - FEELING HOT [None]
  - HYPERHIDROSIS [None]
